FAERS Safety Report 17412075 (Version 5)
Quarter: 2020Q2

REPORT INFORMATION
  Report Type: Spontaneous
  Country: US (occurrence: US)
  Receive Date: 20200213
  Receipt Date: 20200619
  Transmission Date: 20200713
  Serious: Yes (Hospitalization, Disabling)
  Sender: FDA-Public Use
  Company Number: US-DOVA PHARMACEUTICALS INC.-DOV-000423

PATIENT

DRUGS (8)
  1. ELIQUIS [Concomitant]
     Active Substance: APIXABAN
     Indication: PRODUCT USED FOR UNKNOWN INDICATION
  2. VELETRI [Suspect]
     Active Substance: EPOPROSTENOL
     Indication: PULMONARY ARTERIAL HYPERTENSION
     Dosage: 20 NG/KG PER MIN
     Route: 042
  3. OXYGEN W/SODIUM CHLORIDE [Concomitant]
     Indication: PRODUCT USED FOR UNKNOWN INDICATION
  4. ADEMPAS [Concomitant]
     Active Substance: RIOCIGUAT
     Indication: PRODUCT USED FOR UNKNOWN INDICATION
     Dosage: 2.5 MG, TID
     Route: 048
     Dates: start: 201805, end: 202005
  5. OPSUMIT [Suspect]
     Active Substance: MACITENTAN
     Indication: PULMONARY ARTERIAL HYPERTENSION
     Dosage: 10 MG, QD
     Route: 048
     Dates: start: 201805
  6. AVATROMBOPAG [Suspect]
     Active Substance: AVATROMBOPAG
     Indication: IMMUNE THROMBOCYTOPENIA
     Dosage: 20 MG, QD
     Route: 048
  7. VELETRI [Suspect]
     Active Substance: EPOPROSTENOL
     Dosage: 18 NG/KG PER MIN
     Route: 042
     Dates: start: 20180720, end: 20200426
  8. VELETRI [Suspect]
     Active Substance: EPOPROSTENOL
     Dosage: 18 NG/KG PER MIN
     Route: 042
     Dates: end: 20200426

REACTIONS (32)
  - Flank pain [Unknown]
  - Platelet count decreased [Unknown]
  - Haemoglobin decreased [Unknown]
  - Fluid retention [Unknown]
  - Internal haemorrhage [Unknown]
  - Dyspnoea [Unknown]
  - Pain in extremity [Unknown]
  - Terminal state [Unknown]
  - Cough [Unknown]
  - Dyspnoea exertional [Not Recovered/Not Resolved]
  - Asthenia [Unknown]
  - Epistaxis [Unknown]
  - Complication associated with device [Unknown]
  - Back pain [Unknown]
  - Haemoptysis [Unknown]
  - Pulmonary hypertension [Not Recovered/Not Resolved]
  - Condition aggravated [Not Recovered/Not Resolved]
  - Rash macular [Unknown]
  - Flushing [Unknown]
  - Pulmonary haemorrhage [Unknown]
  - Right ventricular failure [Not Recovered/Not Resolved]
  - Dependence on oxygen therapy [Unknown]
  - Unevaluable event [Unknown]
  - Abdominal pain [Unknown]
  - Malaise [Unknown]
  - Gingival pain [Recovering/Resolving]
  - Catheter site haemorrhage [Unknown]
  - Chest pain [Unknown]
  - Rash [Unknown]
  - Rash erythematous [Not Recovered/Not Resolved]
  - Swelling face [Unknown]
  - Pain in jaw [Unknown]
